FAERS Safety Report 13731635 (Version 2)
Quarter: 2017Q3

REPORT INFORMATION
  Report Type: Report from Study
  Country: US (occurrence: US)
  Receive Date: 20170707
  Receipt Date: 20170907
  Transmission Date: 20171127
  Serious: Yes (Other)
  Sender: FDA-Public Use
  Company Number: US-MALLINCKRODT-T201702344

PATIENT
  Sex: Female
  Weight: 61 kg

DRUGS (5)
  1. PREDNISONE. [Suspect]
     Active Substance: PREDNISONE
     Dosage: 5 MG
  2. REPOSITORY CORTICOTROPIN INJECTION [Suspect]
     Active Substance: CORTICOTROPIN
     Indication: SARCOIDOSIS
     Dosage: 1 ML, 3 TIMES A WEEK
     Dates: start: 201701
  3. PREDNISONE. [Suspect]
     Active Substance: PREDNISONE
     Indication: PRODUCT USED FOR UNKNOWN INDICATION
     Dosage: 15 MG DAILY
  4. REPOSITORY CORTICOTROPIN INJECTION [Suspect]
     Active Substance: CORTICOTROPIN
     Indication: POLYMYOSITIS
     Dosage: 80 UNITS EVERY 48 HOURS
     Route: 058
     Dates: start: 201704
  5. REPOSITORY CORTICOTROPIN INJECTION [Suspect]
     Active Substance: CORTICOTROPIN
     Indication: MYOPATHY
     Dosage: 0.5 ML, TWICE WEEKLY
     Route: 058

REACTIONS (15)
  - Gait disturbance [Recovered/Resolved]
  - Nausea [Unknown]
  - Insomnia [Unknown]
  - Injection site swelling [Recovered/Resolved]
  - Fatigue [Recovered/Resolved]
  - Fluid retention [Unknown]
  - Diarrhoea [Unknown]
  - Injection site bruising [Recovered/Resolved]
  - Dizziness [Recovered/Resolved]
  - Tremor [Recovered/Resolved]
  - Somnolence [Recovered/Resolved]
  - Weight increased [Unknown]
  - Injection site mass [Recovered/Resolved]
  - Muscular weakness [Recovered/Resolved]
  - Drug administration error [Unknown]
